FAERS Safety Report 5907783-X (Version None)
Quarter: 2008Q3

REPORT INFORMATION
  Report Type: 
  Country: None (occurrence: None)
  Receive Date: 20080929
  Receipt Date: 20080916
  Transmission Date: 20090109
  Serious: Yes (Death)
  Sender: FDA-Public Use
  Company Number: FABR-1000426

PATIENT
  Sex: Male
  Weight: 181.4 kg

DRUGS (7)
  1. FABRAZYME [Suspect]
     Indication: FABRY'S DISEASE
     Dosage: 1 MG/KG, Q2W, INTRAVENOUS
     Route: 042
     Dates: start: 20060101, end: 20080914
  2. ACETAMINOPHEN [Concomitant]
  3. CLARITIN [Concomitant]
  4. LISINOPRIL [Concomitant]
  5. AMITRIPTYLINE HYDROCHLORIDE [Concomitant]
  6. SIMVASTATIN [Concomitant]
  7. ASPIRIN [Concomitant]

REACTIONS (1)
  - DEATH [None]
